FAERS Safety Report 6390863-5 (Version None)
Quarter: 2009Q4

REPORT INFORMATION
  Report Type: 
  Country: None (occurrence: None)
  Receive Date: 20091003
  Receipt Date: 20090916
  Transmission Date: 20100525
  Serious: Yes (Other)
  Sender: FDA-Public Use
  Company Number: 2009AL006108

PATIENT
  Sex: Male

DRUGS (9)
  1. GABAPENTIN [Suspect]
     Indication: PAIN
     Dosage: 1200 MG; TID; PO
     Route: 048
  2. METHADONE HYDROCHLORIDE [Concomitant]
  3. BENDROFLUAZIDE [Concomitant]
  4. LANSOPRAZOLE [Concomitant]
  5. ATENOLOL [Concomitant]
  6. QUININE SULPHATE [Concomitant]
  7. TESTOSTERONE [Concomitant]
  8. PARACETAMOL [Concomitant]
  9. MAGNESIUM SULFATE [Concomitant]

REACTIONS (2)
  - PAIN [None]
  - SEDATION [None]
